FAERS Safety Report 16890576 (Version 1)
Quarter: 2019Q4

REPORT INFORMATION
  Report Type: Spontaneous
  Country: US (occurrence: US)
  Receive Date: 20191007
  Receipt Date: 20191007
  Transmission Date: 20200122
  Serious: No
  Sender: FDA-Public Use
  Company Number: US-PFIZER INC-2019426214

PATIENT
  Age: 48 Year
  Sex: Female

DRUGS (1)
  1. RAPAMUNE [Suspect]
     Active Substance: SIROLIMUS
     Indication: RENAL TRANSPLANT
     Dosage: 1 DF, 1X/DAY
     Route: 048
     Dates: start: 201012

REACTIONS (3)
  - Blood potassium decreased [Unknown]
  - Product dose omission [Unknown]
  - Dehydration [Unknown]
